FAERS Safety Report 19478564 (Version 1)
Quarter: 2021Q2

REPORT INFORMATION
  Report Type: Spontaneous
  Country: BG (occurrence: BG)
  Receive Date: 20210630
  Receipt Date: 20210630
  Transmission Date: 20210717
  Serious: Yes (Hospitalization)
  Sender: FDA-Public Use
  Company Number: NVSC2021BG058633

PATIENT
  Age: 72 Year
  Sex: Female
  Weight: 76 kg

DRUGS (7)
  1. ANALGIN [Concomitant]
     Indication: PRODUCT USED FOR UNKNOWN INDICATION
     Dosage: UNK ONGOING = NOT CHECKED
     Route: 065
     Dates: start: 20191015, end: 20200824
  2. ENALAPRIL [Concomitant]
     Active Substance: ENALAPRIL
     Indication: PRODUCT USED FOR UNKNOWN INDICATION
     Dosage: UNK (ONGOING = CHECKED)
     Route: 065
     Dates: start: 20091215
  3. DOCETAXEL. [Suspect]
     Active Substance: DOCETAXEL
     Indication: BREAST CANCER
     Dosage: 75 MG, TIW
     Route: 042
     Dates: start: 20191031
  4. ZOLEDRONIC ACID [Suspect]
     Active Substance: ZOLEDRONIC ACID
     Indication: BREAST CANCER
     Dosage: 4 MG, Q4W
     Route: 042
     Dates: start: 20191114
  5. TRAMADOL. [Concomitant]
     Active Substance: TRAMADOL
     Indication: PRODUCT USED FOR UNKNOWN INDICATION
     Dosage: UNK (ONGOING = CHECKED)
     Route: 065
     Dates: start: 20200824
  6. ZARZIO [Concomitant]
     Active Substance: FILGRASTIM
     Indication: LEUKOPENIA
     Dosage: ONGOING = NOT CHECKED
     Route: 065
     Dates: start: 20200709, end: 20200709
  7. TRASTUZUMAB. [Suspect]
     Active Substance: TRASTUZUMAB
     Indication: BREAST CANCER
     Dosage: 1350 MG, TIW (450 MG; MOST RECENT DOSE PRIOR TO THE EVENT: 27/NOV/2019)
     Route: 042
     Dates: start: 20191031, end: 20191031

REACTIONS (2)
  - Anaemia [Recovered/Resolved with Sequelae]
  - Underdose [Unknown]

NARRATIVE: CASE EVENT DATE: 20200807
